FAERS Safety Report 6439315-4 (Version None)
Quarter: 2009Q4

REPORT INFORMATION
  Report Type: 
  Country: None (occurrence: None)
  Receive Date: 20091113
  Receipt Date: 20091110
  Transmission Date: 20100525
  Serious: Yes (Death, Hospitalization)
  Sender: FDA-Public Use
  Company Number: US-ABBOTT-09P-163-0607678-00

PATIENT
  Sex: Male
  Weight: 63.56 kg

DRUGS (17)
  1. ZEMPLAR [Suspect]
     Indication: RENAL FAILURE
     Route: 048
     Dates: start: 20081201, end: 20090601
  2. ZEMPLAR [Suspect]
     Indication: HYPERPARATHYROIDISM SECONDARY
     Route: 048
     Dates: end: 20090729
  3. PLAVIX [Concomitant]
     Indication: CARDIAC DISORDER
     Route: 048
     Dates: end: 20090722
  4. HYDROCHLOROTHIAZIDE [Concomitant]
     Indication: CARDIAC DISORDER
     Route: 048
     Dates: end: 20090722
  5. DARVOCET [Concomitant]
     Indication: PAIN
     Route: 048
     Dates: end: 20090730
  6. TRAMADOL HCL [Concomitant]
     Indication: PAIN
     Route: 048
     Dates: end: 20090722
  7. HEMAX [Concomitant]
     Indication: MINERAL SUPPLEMENTATION
     Route: 048
     Dates: end: 20090722
  8. DILTIAZEM [Concomitant]
     Indication: CARDIAC DISORDER
     Route: 048
     Dates: end: 20090730
  9. SIMVASTATIN [Concomitant]
     Indication: CARDIAC DISORDER
     Route: 048
     Dates: end: 20090730
  10. FINASTERIDE [Concomitant]
     Indication: DRUG USE FOR UNKNOWN INDICATION
     Route: 048
     Dates: end: 20090730
  11. SENNA [Concomitant]
     Indication: CONSTIPATION
  12. NITROGLYCERIN [Concomitant]
     Indication: CARDIAC DISORDER
     Route: 060
  13. REGLAN [Concomitant]
     Indication: DRUG USE FOR UNKNOWN INDICATION
     Route: 048
  14. LISINOPRIL [Concomitant]
     Indication: HYPERTENSION
     Route: 048
     Dates: end: 20090730
  15. PROCRIT [Concomitant]
     Indication: ANAEMIA
     Route: 058
  16. LASIX [Concomitant]
     Indication: DRUG USE FOR UNKNOWN INDICATION
     Route: 048
     Dates: start: 20090722
  17. CIPROFLOXACIN [Concomitant]
     Indication: BACTERAEMIA
     Route: 048
     Dates: start: 20090701

REACTIONS (5)
  - BACTERAEMIA [None]
  - CARDIAC DISORDER [None]
  - HYPERTENSION [None]
  - PAIN [None]
  - RENAL FAILURE [None]
